FAERS Safety Report 13359483 (Version 2)
Quarter: 2017Q2

REPORT INFORMATION
  Report Type: Spontaneous
  Country: IT (occurrence: IT)
  Receive Date: 20170322
  Receipt Date: 20170518
  Transmission Date: 20170830
  Serious: Yes (Other)
  Sender: FDA-Public Use
  Company Number: PHHY2017IT042877

PATIENT
  Age: 44 Year
  Sex: Male

DRUGS (4)
  1. LOMUSTINE. [Concomitant]
     Active Substance: LOMUSTINE
     Indication: OLIGOASTROCYTOMA
     Dosage: UNK
     Route: 065
     Dates: start: 2004
  2. VINCRISTINE [Concomitant]
     Active Substance: VINCRISTINE
     Indication: OLIGOASTROCYTOMA
     Dosage: UNK
     Route: 065
     Dates: start: 2004
  3. PROCARBAZINE [Concomitant]
     Active Substance: PROCARBAZINE
     Indication: OLIGOASTROCYTOMA
     Dosage: UNK
     Route: 065
     Dates: start: 2004
  4. OXCARBAZEPINE. [Suspect]
     Active Substance: OXCARBAZEPINE
     Indication: CONVULSION PROPHYLAXIS
     Route: 065

REACTIONS (1)
  - Neutropenia [Recovered/Resolved]

NARRATIVE: CASE EVENT DATE: 2004
